FAERS Safety Report 13718668 (Version 2)
Quarter: 2017Q3

REPORT INFORMATION
  Report Type: Spontaneous
  Country: US (occurrence: US)
  Receive Date: 20170705
  Receipt Date: 20170725
  Transmission Date: 20171127
  Serious: Yes (Other)
  Sender: FDA-Public Use
  Company Number: GXBR2017US002129

PATIENT
  Sex: Male
  Weight: 86.17 kg

DRUGS (3)
  1. OMEPRAZOLE. [Concomitant]
     Active Substance: OMEPRAZOLE
     Indication: BARRETT^S OESOPHAGUS
     Dosage: 1 DF, QD
     Route: 065
     Dates: start: 201404
  2. AMOXICILLIN AND CLAVULANATE POTASSIUM TABLETS USP [Suspect]
     Active Substance: AMOXICILLIN\CLAVULANATE POTASSIUM
     Indication: OTITIS MEDIA
  3. AMOXICILLIN AND CLAVULANATE POTASSIUM TABLETS USP [Suspect]
     Active Substance: AMOXICILLIN\CLAVULANATE POTASSIUM
     Indication: ACUTE SINUSITIS
     Dosage: 875MG/125MG, 1 DF, Q12H
     Route: 048
     Dates: start: 20170520, end: 20170530

REACTIONS (10)
  - Jaundice [Recovering/Resolving]
  - Decreased appetite [Recovering/Resolving]
  - Somnolence [Recovering/Resolving]
  - Liver injury [Recovering/Resolving]
  - Lethargy [Recovering/Resolving]
  - Eye irritation [Recovering/Resolving]
  - Weight decreased [Recovering/Resolving]
  - Chromaturia [Recovering/Resolving]
  - Faeces discoloured [Recovering/Resolving]
  - Pruritus [Recovering/Resolving]
